FAERS Safety Report 4305296-2 (Version None)
Quarter: 2004Q1

REPORT INFORMATION
  Report Type: 
  Country: None (occurrence: None)
  Receive Date: 20040226
  Receipt Date: 20030310
  Transmission Date: 20041129
  Serious: No
  Sender: FDA-Public Use
  Company Number: US-BRISTOL-MYERS SQUIBB COMPANY-12207270

PATIENT
  Age: 51 Year
  Sex: Female
  Weight: 58 kg

DRUGS (3)
  1. PACLITAXEL [Suspect]
     Indication: OVARIAN CANCER
     Dosage: RECHALLENGE ON 12-MAR-2003
     Route: 042
     Dates: start: 20030219, end: 20030219
  2. CISPLATIN [Concomitant]
  3. STEROIDS [Concomitant]
     Indication: PREMEDICATION

REACTIONS (7)
  - CHEST DISCOMFORT [None]
  - DIZZINESS [None]
  - FLUSHING [None]
  - HYPERTENSION [None]
  - PALPITATIONS [None]
  - PHOTOPSIA [None]
  - TACHYCARDIA [None]
